FAERS Safety Report 11240562 (Version 1)
Quarter: 2015Q1

REPORT INFORMATION
  Report Type: Spontaneous
  Country: US (occurrence: None)
  Receive Date: 20140701
  Receipt Date: 20140701
  Transmission Date: 20150721
  Serious: Yes (Other)
  Sender: FDA-Public Use
  Company Number: 20140347

PATIENT

DRUGS (1)
  1. METHYLENE BLUE INJECTION  1% [Suspect]
     Active Substance: METHYLENE BLUE
     Indication: LYMPHATIC MAPPING

REACTIONS (1)
  - Anaphylactic shock [None]
